FAERS Safety Report 6700380-8 (Version None)
Quarter: 2010Q2

REPORT INFORMATION
  Report Type: 
  Country: None (occurrence: None)
  Receive Date: 20100428
  Receipt Date: 20100420
  Transmission Date: 20101027
  Serious: Yes (Hospitalization)
  Sender: FDA-Public Use
  Company Number: JP-ASTRAZENECA-2010SE18529

PATIENT
  Age: 57 Year
  Sex: Female

DRUGS (4)
  1. SEROQUEL [Suspect]
     Indication: SCHIZOPHRENIA
     Route: 048
     Dates: start: 20030101
  2. SERENACE [Suspect]
     Route: 048
  3. LULLAN [Suspect]
     Route: 048
  4. AKINETON [Concomitant]
     Route: 048

REACTIONS (1)
  - THYROID FUNCTION TEST ABNORMAL [None]
